FAERS Safety Report 7337991-5 (Version None)
Quarter: 2011Q1

REPORT INFORMATION
  Report Type: 
  Country: None (occurrence: None)
  Receive Date: 20110308
  Receipt Date: 20110221
  Transmission Date: 20110831
  Serious: Yes (Other)
  Sender: FDA-Public Use
  Company Number: JP-ROCHE-760887

PATIENT

DRUGS (1)
  1. RIBAVIRIN [Suspect]
     Route: 065

REACTIONS (2)
  - TYPE 1 DIABETES MELLITUS [None]
  - DIABETES MELLITUS [None]
